FAERS Safety Report 10176141 (Version 1)
Quarter: 2014Q2

REPORT INFORMATION
  Report Type: Spontaneous
  Country: US (occurrence: US)
  Receive Date: 20140516
  Receipt Date: 20140516
  Transmission Date: 20141212
  Serious: Yes (Other)
  Sender: FDA-Public Use
  Company Number: US-PFIZER INC-2014130747

PATIENT
  Age: 78 Year
  Sex: Male

DRUGS (4)
  1. SUTENT [Suspect]
     Indication: RENAL CANCER
     Dosage: 50 MG, UNK
     Dates: start: 20140124
  2. CLONIDINE HYDROCHLORIDE [Concomitant]
     Dosage: UNK
  3. POTASSIUM CHLORIDE ER [Concomitant]
     Dosage: UNK
  4. SPIRIVA HANDIHALER [Concomitant]
     Dosage: UNK

REACTIONS (1)
  - Neutropenia [Unknown]
